FAERS Safety Report 22883612 (Version 2)
Quarter: 2023Q4

REPORT INFORMATION
  Report Type: Spontaneous
  Country: US (occurrence: US)
  Receive Date: 20230830
  Receipt Date: 20231005
  Transmission Date: 20240109
  Serious: No
  Sender: FDA-Public Use
  Company Number: US-Ipsen Biopharmaceuticals, Inc.-2023-17968

PATIENT
  Age: 37 Year
  Sex: Female
  Weight: 114 kg

DRUGS (10)
  1. TAZVERIK [Suspect]
     Active Substance: TAZEMETOSTAT HYDROBROMIDE
     Indication: Ovarian cancer
     Dosage: 4 TABS BID
     Route: 048
     Dates: start: 20230613
  2. BACTRIM DS [Concomitant]
     Active Substance: SULFAMETHOXAZOLE\TRIMETHOPRIM
     Route: 048
  3. NORCO [Concomitant]
     Active Substance: ACETAMINOPHEN\HYDROCODONE BITARTRATE
  4. KEYTRUDA [Concomitant]
     Active Substance: PEMBROLIZUMAB
  5. PANTOPRAZOLE [Concomitant]
     Active Substance: PANTOPRAZOLE
     Route: 048
  6. IMODIUM A-D [Concomitant]
     Active Substance: LOPERAMIDE HYDROCHLORIDE
     Route: 048
  7. HYDROCODONE-ACETAMINOPHEN O [Concomitant]
     Route: 048
  8. OXYCODONE [Concomitant]
     Active Substance: OXYCODONE
  9. GABAPENTIN [Concomitant]
     Active Substance: GABAPENTIN
  10. CYCLOBENZAPRINE [Concomitant]
     Active Substance: CYCLOBENZAPRINE

REACTIONS (3)
  - Diarrhoea [Not Recovered/Not Resolved]
  - Memory impairment [Recovering/Resolving]
  - Product dose omission issue [Unknown]
